FAERS Safety Report 26150083 (Version 1)
Quarter: 2025Q4

REPORT INFORMATION
  Report Type: Report from Study
  Country: US (occurrence: US)
  Receive Date: 20251212
  Receipt Date: 20251212
  Transmission Date: 20260118
  Serious: Yes (Hospitalization, Other)
  Sender: ALEXION PHARMACEUTICALS
  Company Number: US-AstraZeneca-CH-01010280A

PATIENT
  Sex: Male
  Weight: 90 kg

DRUGS (5)
  1. ACALABRUTINIB [Suspect]
     Active Substance: ACALABRUTINIB
     Indication: Mantle cell lymphoma
     Dosage: 100 MICROGRAM, BID
     Dates: start: 20241204
  2. ALBUTEROL (PT007) [Concomitant]
     Route: 065
  3. ATORVASTATIN [Concomitant]
     Active Substance: ATORVASTATIN
     Route: 065
  4. CELEXA [Concomitant]
     Active Substance: CITALOPRAM HYDROBROMIDE
     Route: 065
  5. LISINOPRIL [Concomitant]
     Active Substance: LISINOPRIL
     Route: 065

REACTIONS (7)
  - Pneumonia [Unknown]
  - Bronchitis [Unknown]
  - Sinusitis [Unknown]
  - Cardiac failure [Unknown]
  - Pseudomonas infection [Unknown]
  - Sinusitis [Unknown]
  - Urinary tract infection [Unknown]
